FAERS Safety Report 21413505 (Version 3)
Quarter: 2022Q4

REPORT INFORMATION
  Report Type: Spontaneous
  Country: JP (occurrence: JP)
  Receive Date: 20221006
  Receipt Date: 20221221
  Transmission Date: 20230113
  Serious: Yes (Other)
  Sender: FDA-Public Use
  Company Number: JP-BRISTOL-MYERS SQUIBB COMPANY-2022-101375

PATIENT
  Age: 62 Year
  Sex: Female

DRUGS (18)
  1. REVLIMID [Suspect]
     Active Substance: LENALIDOMIDE
     Indication: Follicular lymphoma
     Dates: start: 20220316, end: 20220405
  2. REVLIMID [Suspect]
     Active Substance: LENALIDOMIDE
     Dates: start: 20220425, end: 20220515
  3. REVLIMID [Suspect]
     Active Substance: LENALIDOMIDE
     Dates: start: 20220523, end: 20220612
  4. REVLIMID [Suspect]
     Active Substance: LENALIDOMIDE
     Dates: start: 20220620, end: 20220710
  5. REVLIMID [Suspect]
     Active Substance: LENALIDOMIDE
     Dates: start: 20220719, end: 20220808
  6. RITUXIMAB [Suspect]
     Active Substance: RITUXIMAB
     Indication: Follicular lymphoma
     Dates: start: 20220316, end: 20220316
  7. RITUXIMAB [Suspect]
     Active Substance: RITUXIMAB
     Dates: start: 20220323, end: 20220323
  8. RITUXIMAB [Suspect]
     Active Substance: RITUXIMAB
     Dates: start: 20220330, end: 20220330
  9. RITUXIMAB [Suspect]
     Active Substance: RITUXIMAB
     Dates: start: 20220406, end: 20220406
  10. RITUXIMAB [Suspect]
     Active Substance: RITUXIMAB
     Dates: start: 20220425, end: 20220425
  11. RITUXIMAB [Suspect]
     Active Substance: RITUXIMAB
     Dates: start: 20220523, end: 20220523
  12. RITUXIMAB [Suspect]
     Active Substance: RITUXIMAB
     Dates: start: 20220620, end: 20220620
  13. RITUXIMAB [Suspect]
     Active Substance: RITUXIMAB
     Dates: start: 20220719, end: 20220719
  14. ASPIRIN [Concomitant]
     Active Substance: ASPIRIN
     Indication: Prophylaxis
     Route: 048
     Dates: start: 20220316
  15. LANSOPRAZOLE [Concomitant]
     Active Substance: LANSOPRAZOLE
     Indication: Gastritis
     Route: 048
     Dates: start: 20220316
  16. SULFAMETHOXAZOLE\TRIMETHOPRIM [Concomitant]
     Active Substance: SULFAMETHOXAZOLE\TRIMETHOPRIM
     Indication: Prophylaxis
     Route: 048
     Dates: start: 20220316
  17. MAGNESIUM OXIDE [Concomitant]
     Active Substance: MAGNESIUM OXIDE
     Indication: Prophylaxis
     Route: 048
     Dates: start: 20220316
  18. PIPERACILLIN SODIUM [Concomitant]
     Active Substance: PIPERACILLIN SODIUM
     Indication: Cholangitis
     Route: 048
     Dates: start: 20220316

REACTIONS (1)
  - Cholangitis [Unknown]
